FAERS Safety Report 22060517 (Version 2)
Quarter: 2023Q4

REPORT INFORMATION
  Report Type: Report from Study
  Country: US (occurrence: US)
  Receive Date: 20230303
  Receipt Date: 20231018
  Transmission Date: 20240110
  Serious: Yes (Hospitalization)
  Sender: FDA-Public Use
  Company Number: US-BIOVITRUM-2022US13107

PATIENT
  Age: 48 Year
  Sex: Female

DRUGS (1)
  1. KINERET [Suspect]
     Active Substance: ANAKINRA
     Indication: Rheumatoid arthritis
     Dosage: DAILY
     Route: 058
     Dates: start: 20220317

REACTIONS (11)
  - Dehydration [Unknown]
  - Brain fog [Unknown]
  - Amnesia [Unknown]
  - Post-acute COVID-19 syndrome [Unknown]
  - Injection site pruritus [Unknown]
  - Product use complaint [Unknown]
  - Hand deformity [Unknown]
  - Weight decreased [Unknown]
  - Pyrexia [Unknown]
  - Nasopharyngitis [Unknown]
  - Infection [Unknown]
